FAERS Safety Report 21490569 (Version 3)
Quarter: 2023Q1

REPORT INFORMATION
  Report Type: Spontaneous
  Country: SI (occurrence: SI)
  Receive Date: 20221021
  Receipt Date: 20230131
  Transmission Date: 20230417
  Serious: Yes (Death)
  Sender: FDA-Public Use
  Company Number: None

PATIENT
  Age: 52 Year
  Sex: Male
  Weight: 118 kg

DRUGS (9)
  1. CINACALCET HYDROCHLORIDE [Concomitant]
     Active Substance: CINACALCET HYDROCHLORIDE
     Indication: Hyperparathyroidism secondary
     Dosage: STRENGTH: 30 DOSE: 1
     Route: 048
  2. ALLOPURINOL [Concomitant]
     Active Substance: ALLOPURINOL
     Indication: Blood uric acid increased
     Dosage: STRENGTH: 100 DOSE: 1 TBL
     Route: 048
     Dates: start: 2006, end: 20220919
  3. INSULIN ASPART [Concomitant]
     Active Substance: INSULIN ASPART
     Indication: Type 2 diabetes mellitus
     Dosage: STRENGTH: 30 AND 50  DOSE: 76 E NM 50 AND 42 E NM 30
     Route: 058
     Dates: start: 20130913, end: 20220919
  4. ATORVASTATIN CALCIUM [Concomitant]
     Active Substance: ATORVASTATIN CALCIUM
     Indication: Hypercholesterolaemia
     Dosage: 40 MG STRENGTH: 40 ODMEREK: 1
     Route: 048
     Dates: end: 20220919
  5. BISOPROLOL [Concomitant]
     Active Substance: BISOPROLOL
     Indication: Hypertension
     Dosage: 1,25 MG STRENGTH: 1.25 DOSE: 1
     Route: 048
     Dates: end: 20210919
  6. LASIX [Concomitant]
     Active Substance: FUROSEMIDE
     Indication: Polyuria
     Dosage: 40 MG STRENGTH:40 DOSE: 1
     Route: 048
     Dates: end: 20220919
  7. SODIUM BICARBONATE [Concomitant]
     Active Substance: SODIUM BICARBONATE
     Indication: Blood phosphorus increased
     Dosage: STRENGTH:500 DOSE: 2X1
     Route: 048
     Dates: end: 20220919
  8. RYBELSUS [Suspect]
     Active Substance: SEMAGLUTIDE
     Indication: Type 2 diabetes mellitus
     Dosage: STRENGHT: 3 MG DOSE: 1
     Route: 048
     Dates: end: 20220929
  9. CANDESARTAN CILEXETIL [Concomitant]
     Active Substance: CANDESARTAN CILEXETIL
     Indication: Hypertension
     Dosage: STRENGTH: 32 DOSE: 1
     Route: 048
     Dates: end: 20220919

REACTIONS (3)
  - Pancreatitis acute [Fatal]
  - Multiple organ dysfunction syndrome [Fatal]
  - Pancreatitis necrotising [Fatal]

NARRATIVE: CASE EVENT DATE: 20120919
